FAERS Safety Report 23695179 (Version 1)
Quarter: 2024Q2

REPORT INFORMATION
  Report Type: Spontaneous
  Country: AR (occurrence: AR)
  Receive Date: 20240402
  Receipt Date: 20240402
  Transmission Date: 20240715
  Serious: Yes (Hospitalization, Other)
  Sender: FDA-Public Use
  Company Number: AR-MLMSERVICE-20240312-4873137-1

PATIENT
  Age: 43 Year
  Sex: Male

DRUGS (6)
  1. ROPINIROLE [Suspect]
     Active Substance: ROPINIROLE
     Indication: Parkinson^s disease
     Dates: start: 2022
  2. CLONAZEPAM [Concomitant]
     Active Substance: CLONAZEPAM
     Indication: Impulse-control disorder
     Dates: start: 2023
  3. PAROXETINE [Concomitant]
     Active Substance: PAROXETINE
     Indication: Impulse-control disorder
     Dates: start: 2023
  4. RASAGILINE [Concomitant]
     Active Substance: RASAGILINE\RASAGILINE MESYLATE
     Indication: Parkinson^s disease
     Dates: start: 2022
  5. ROPINIROLE [Suspect]
     Active Substance: ROPINIROLE
     Indication: Parkinson^s disease
     Dosage: DOSE INCREASED UP TO 16 MG/DAY
     Dates: start: 2023, end: 2023
  6. ROPINIROLE [Suspect]
     Active Substance: ROPINIROLE
     Indication: Parkinson^s disease
     Dosage: DOSE TITRATED UP TO 8 MG
     Dates: start: 2022

REACTIONS (5)
  - Dopamine agonist withdrawal syndrome [Unknown]
  - Suicide attempt [Unknown]
  - Fatigue [Unknown]
  - Anxiety [Unknown]
  - Agitation [Unknown]

NARRATIVE: CASE EVENT DATE: 20230101
